FAERS Safety Report 4286465-7 (Version None)
Quarter: 2004Q1

REPORT INFORMATION
  Report Type: 
  Country: None (occurrence: None)
  Receive Date: 20040204
  Receipt Date: 20040123
  Transmission Date: 20041129
  Serious: Yes (Death)
  Sender: FDA-Public Use
  Company Number: 163-20785-03120044 (0)

PATIENT
  Age: 64 Year
  Sex: Female

DRUGS (4)
  1. THALOMID [Suspect]
     Indication: BURKITT'S LYMPHOMA
     Dosage: 50 MG, DAILY, ORAL
     Route: 048
     Dates: start: 20031119, end: 20031122
  2. THALOMID [Suspect]
     Indication: BURKITT'S LYMPHOMA
     Dosage: 50 MG, DAILY, ORAL
     Route: 048
     Dates: start: 20031126, end: 20031208
  3. TAMIFLU [Concomitant]
  4. MULTIPLE ALTERNATIVE TREATMENTS [Concomitant]

REACTIONS (5)
  - CHRONIC LYMPHOCYTIC LEUKAEMIA [None]
  - PETECHIAE [None]
  - RASH [None]
  - SEPTIC SHOCK [None]
  - SKIN DISCOLOURATION [None]
